FAERS Safety Report 9431980 (Version 2)
Quarter: 2013Q3

REPORT INFORMATION
  Report Type: Spontaneous
  Country: CL (occurrence: CL)
  Receive Date: 20130731
  Receipt Date: 20130917
  Transmission Date: 20140515
  Serious: Yes (Hospitalization, Other)
  Sender: FDA-Public Use
  Company Number: CL-JNJFOC-20130714171

PATIENT
  Age: 56 Year
  Sex: Female
  Weight: 60 kg

DRUGS (4)
  1. XARELTO [Suspect]
     Indication: THROMBOSIS PROPHYLAXIS
     Route: 048
     Dates: start: 20130711, end: 20130715
  2. XARELTO [Suspect]
     Indication: MENISCUS OPERATION
     Route: 048
     Dates: start: 20130711, end: 20130715
  3. CANDESARTAN [Concomitant]
     Indication: HYPERTENSION
     Route: 065
  4. DALTEPARIN [Concomitant]
     Dosage: 5000 USC
     Route: 058
     Dates: start: 201307, end: 201307

REACTIONS (2)
  - Deep vein thrombosis [Recovered/Resolved]
  - Drug ineffective [Unknown]
